FAERS Safety Report 23384203 (Version 1)
Quarter: 2024Q1

REPORT INFORMATION
  Report Type: Spontaneous
  Country: CN (occurrence: CN)
  Receive Date: 20240109
  Receipt Date: 20240109
  Transmission Date: 20240410
  Serious: Yes (Hospitalization, Other)
  Sender: FDA-Public Use
  Company Number: CN-002147023-NVSC2024CN001871

PATIENT
  Age: 1 Year
  Sex: Male
  Weight: 12.5 kg

DRUGS (1)
  1. OXCARBAZEPINE [Suspect]
     Active Substance: OXCARBAZEPINE
     Indication: Epilepsy
     Dosage: 6 ML, BID
     Route: 048
     Dates: start: 20220601, end: 20231227

REACTIONS (5)
  - Hyponatraemia [Recovering/Resolving]
  - Brain oedema [Recovering/Resolving]
  - Pyrexia [Unknown]
  - Seizure [Unknown]
  - Blood chloride decreased [Unknown]

NARRATIVE: CASE EVENT DATE: 20231212
